FAERS Safety Report 5629180-7 (Version None)
Quarter: 2008Q1

REPORT INFORMATION
  Report Type: 
  Country: None (occurrence: None)
  Receive Date: 20080217
  Receipt Date: 20080126
  Transmission Date: 20080703
  Serious: No
  Sender: FDA-Public Use
  Company Number: US-BAXTER-2008BH000894

PATIENT
  Age: 58 Year
  Sex: Male
  Weight: 108 kg

DRUGS (8)
  1. HEPARIN SODIUM [Suspect]
     Indication: PROPHYLAXIS
     Route: 010
  2. CALCITRIOL [Concomitant]
     Indication: RENAL DISORDER
     Route: 065
  3. CLARITIN [Concomitant]
     Indication: HYPERSENSITIVITY
     Route: 065
  4. EPOGEN [Concomitant]
     Indication: RED BLOOD CELL COUNT INCREASED
     Route: 065
  5. POTASSIUM CHLORIDE [Concomitant]
     Indication: DIALYSIS
     Route: 065
  6. PROTONIX [Concomitant]
     Indication: DIALYSIS
     Route: 065
  7. RENAGIL [Concomitant]
     Indication: DIALYSIS
     Route: 065
  8. NEORAL [Concomitant]
     Indication: LIVER TRANSPLANT
     Route: 065

REACTIONS (2)
  - GASTROENTERITIS VIRAL [None]
  - VOMITING [None]
